FAERS Safety Report 16305849 (Version 1)
Quarter: 2019Q2

REPORT INFORMATION
  Report Type: Spontaneous
  Country: US (occurrence: US)
  Receive Date: 20190512
  Receipt Date: 20190512
  Transmission Date: 20190711
  Serious: Yes (Life-Threatening, Hospitalization, Other)
  Sender: FDA-Public Use
  Company Number: None

PATIENT
  Age: 63 Year
  Sex: Male
  Weight: 67.5 kg

DRUGS (5)
  1. JARDIANCE [Suspect]
     Active Substance: EMPAGLIFLOZIN
     Indication: DIABETES MELLITUS
     Dates: start: 20180809, end: 20190410
  2. CRESTOR [Concomitant]
     Active Substance: ROSUVASTATIN CALCIUM
  3. METFORMIN [Concomitant]
     Active Substance: METFORMIN HYDROCHLORIDE
  4. GLIMEPIRIDE. [Concomitant]
     Active Substance: GLIMEPIRIDE
  5. OXCARBAPEZINE [Concomitant]

REACTIONS (13)
  - Heart rate increased [None]
  - Fall [None]
  - Urine output increased [None]
  - Penis disorder [None]
  - Mental impairment [None]
  - Dehydration [None]
  - Hypokinesia [None]
  - Testicular pain [None]
  - Asthenia [None]
  - Loss of consciousness [None]
  - Depression [None]
  - Fungal infection [None]
  - Groin pain [None]

NARRATIVE: CASE EVENT DATE: 20181228
